FAERS Safety Report 14256095 (Version 1)
Quarter: 2017Q4

REPORT INFORMATION
  Report Type: Spontaneous
  Country: KZ (occurrence: KZ)
  Receive Date: 20171206
  Receipt Date: 20171206
  Transmission Date: 20180321
  Serious: Yes (Hospitalization, Other)
  Sender: FDA-Public Use
  Company Number: KZ-BAYER-2017-235428

PATIENT
  Age: 41 Year
  Sex: Female
  Weight: 84 kg

DRUGS (2)
  1. ULTRAVIST [Suspect]
     Active Substance: IOPROMIDE
     Indication: TAKAYASU^S ARTERITIS
  2. ULTRAVIST [Suspect]
     Active Substance: IOPROMIDE
     Indication: SCAN WITH CONTRAST
     Dosage: 100 ML, ONCE
     Route: 042
     Dates: start: 20171204, end: 20171204

REACTIONS (4)
  - Tremor [None]
  - Blood pressure increased [None]
  - Auditory disorder [None]
  - Chills [None]

NARRATIVE: CASE EVENT DATE: 20171204
